FAERS Safety Report 13887438 (Version 1)
Quarter: 2017Q3

REPORT INFORMATION
  Report Type: Spontaneous
  Country: US (occurrence: US)
  Receive Date: 20170821
  Receipt Date: 20170821
  Transmission Date: 20171127
  Serious: No
  Sender: FDA-Public Use
  Company Number: US-ROCHE-755663

PATIENT
  Age: 73 Year
  Sex: Female
  Weight: 59 kg

DRUGS (11)
  1. ACTEMRA [Suspect]
     Active Substance: TOCILIZUMAB
     Indication: RHEUMATOID ARTHRITIS
     Dosage: FORM: INFUSION
     Route: 042
     Dates: start: 20101108, end: 20101108
  2. IMURAN [Concomitant]
     Active Substance: AZATHIOPRINE
     Indication: RHEUMATOID ARTHRITIS
     Route: 065
  3. CRANBERRY. [Concomitant]
     Active Substance: CRANBERRY
     Route: 065
  4. ACTEMRA [Suspect]
     Active Substance: TOCILIZUMAB
     Route: 042
     Dates: start: 20101206, end: 20101206
  5. ACTEMRA [Suspect]
     Active Substance: TOCILIZUMAB
     Route: 042
  6. CALCIUM/VITAMIN D [Concomitant]
     Active Substance: CALCIUM\VITAMIN D
     Dosage: CALCIUM 600/VIT D3 400 IU
     Route: 065
  7. CLARITIN [Concomitant]
     Active Substance: LORATADINE
     Route: 065
  8. TRIAMTERENE. [Concomitant]
     Active Substance: TRIAMTERENE
     Indication: DIURETIC THERAPY
     Dosage: DRUG NAME: TRIAMTERENE 75/50
     Route: 065
  9. PRILOSEC [Concomitant]
     Active Substance: OMEPRAZOLE MAGNESIUM
     Route: 065
  10. POTASSIUM [Concomitant]
     Active Substance: POTASSIUM
     Indication: MUSCLE SPASMS
     Route: 065
  11. LOVASTATIN. [Concomitant]
     Active Substance: LOVASTATIN
     Indication: BLOOD CHOLESTEROL
     Route: 065

REACTIONS (4)
  - Vitamin D decreased [Unknown]
  - Pharyngitis [Recovered/Resolved]
  - Headache [Not Recovered/Not Resolved]
  - Chest pain [Not Recovered/Not Resolved]

NARRATIVE: CASE EVENT DATE: 20101108
